FAERS Safety Report 9935212 (Version 5)
Quarter: 2014Q2

REPORT INFORMATION
  Report Type: Spontaneous
  Country: US (occurrence: US)
  Receive Date: 20140228
  Receipt Date: 20140422
  Transmission Date: 20141212
  Serious: Yes (Hospitalization, Other)
  Sender: FDA-Public Use
  Company Number: US-FRI-1000054761

PATIENT
  Age: 71 Year
  Sex: Female
  Weight: 63 kg

DRUGS (17)
  1. TUDORZA PRESSAIR [Suspect]
     Indication: CHRONIC OBSTRUCTIVE PULMONARY DISEASE
     Dosage: 800MCG
     Route: 055
     Dates: start: 20131209, end: 20140127
  2. PROZAC [Concomitant]
     Indication: AFFECTIVE DISORDER
     Dosage: 40MG
     Dates: start: 20131209, end: 20140130
  3. VERAPAMIL [Concomitant]
     Indication: HYPERTENSION
     Dosage: 300MG NIGHTLY
     Dates: start: 20131223
  4. PRAVASTATIN [Concomitant]
     Dosage: 40MG
     Dates: start: 20131209
  5. CLONAZEPAM [Concomitant]
     Indication: RESTLESS LEGS SYNDROME
     Dosage: 0.5MG ONE TO TWO TABLETS AT BEDTIME AS NEEDED
     Dates: start: 20130911
  6. TRAMADOL [Concomitant]
     Indication: PAIN
     Dosage: 50MG Q 6HOURS AS NEEDED
     Dates: start: 20131209
  7. LASIX [Concomitant]
     Indication: OEDEMA
     Dosage: 20MG AS NEEDED
     Route: 048
     Dates: start: 20130402
  8. PEPCID AC [Concomitant]
     Dosage: 20MG
     Route: 048
  9. CITRACAL [Concomitant]
     Dosage: DAILY
  10. CYANOCOBALAMIN [Concomitant]
     Dosage: 500MCG
     Route: 048
  11. B COMPLEX VITAMINS [Concomitant]
     Dosage: ONE CAPSULE DAILY
     Route: 048
  12. VITAMIN D3 [Concomitant]
     Dosage: 2000IU
     Route: 048
  13. FERROUS SULFATE [Concomitant]
     Indication: ANAEMIA
     Dosage: 325MG WITH BREAKFAST
  14. FISH OIL-OMEGA-3 FATTY ACIDS [Concomitant]
     Dosage: 1000MG
     Route: 048
  15. SENNA [Concomitant]
     Indication: CONSTIPATION
     Dosage: 50MG (FREQUENCY UNKNOWN)
  16. METROCREAM [Concomitant]
     Indication: RASH
     Dosage: APPLY A THIN LAYER TWICE DAILY
     Dates: start: 20131209
  17. COLACE [Concomitant]
     Dosage: 200MG
     Route: 048

REACTIONS (15)
  - Small cell lung cancer [Not Recovered/Not Resolved]
  - Inappropriate antidiuretic hormone secretion [Unknown]
  - Hypotension [Unknown]
  - Eye pain [Recovered/Resolved]
  - Dysarthria [Recovered/Resolved]
  - Gait disturbance [Recovered/Resolved]
  - Vision blurred [Recovered/Resolved]
  - Constipation [Recovered/Resolved]
  - Abdominal pain upper [Recovered/Resolved]
  - Photosensitivity reaction [Unknown]
  - Photophobia [Unknown]
  - Malaise [Unknown]
  - Abdominal pain [Unknown]
  - Neck pain [Unknown]
  - Chest pain [Unknown]
